FAERS Safety Report 24963306 (Version 1)
Quarter: 2025Q1

REPORT INFORMATION
  Report Type: Report from Study
  Country: CA (occurrence: CA)
  Receive Date: 20250213
  Receipt Date: 20250213
  Transmission Date: 20250408
  Serious: No
  Sender: ROCHE
  Company Number: CA-ROCHE-10000202208

PATIENT
  Age: 28 Year
  Sex: Female

DRUGS (2)
  1. OCREVUS [Suspect]
     Active Substance: OCRELIZUMAB
     Indication: Relapsing-remitting multiple sclerosis
     Dosage: MORE DOSAGE INFORMATION IS 300 MG AT DAY 0 AND 14, THEN 600 MG EVERY 6 MONTHS
     Route: 042
     Dates: start: 20191104
  2. SAMBUCOL [Suspect]
     Active Substance: BRYONIA ALBA ROOT\GELSEMIUM SEMPERVIRENS ROOT\SAMBUCUS NIGRA FLOWERING TOP\SULFUR\ZINC GLUCONATE
     Indication: Influenza
     Route: 065

REACTIONS (5)
  - Muscular weakness [Unknown]
  - Influenza [Unknown]
  - Abdominal pain upper [Unknown]
  - Dizziness [Unknown]
  - Muscle disorder [Recovering/Resolving]

NARRATIVE: CASE EVENT DATE: 20250202
